FAERS Safety Report 13760972 (Version 1)
Quarter: 2017Q3

REPORT INFORMATION
  Report Type: Spontaneous
  Country: US (occurrence: US)
  Receive Date: 20170717
  Receipt Date: 20170717
  Transmission Date: 20171127
  Serious: Yes (Other)
  Sender: FDA-Public Use
  Company Number: PHHY2017US103409

PATIENT
  Sex: Female

DRUGS (1)
  1. DEXMEDETOMIDINE. [Suspect]
     Active Substance: DEXMEDETOMIDINE
     Indication: SEDATION
     Route: 045

REACTIONS (5)
  - Off label use [Unknown]
  - Hypoxia [Recovered/Resolved]
  - Agitation [Unknown]
  - Hyperventilation [Unknown]
  - Hypopnoea [Recovered/Resolved]
